FAERS Safety Report 9851797 (Version 1)
Quarter: 2014Q1

REPORT INFORMATION
  Report Type: Spontaneous
  Country: US (occurrence: None)
  Receive Date: 20140127
  Receipt Date: 20140127
  Transmission Date: 20141002
  Serious: Yes (Death)
  Sender: FDA-Public Use
  Company Number: 2014AP000379

PATIENT
  Age: 44 Year
  Sex: Male

DRUGS (3)
  1. ZOLPIDEM TARTRATE TABLETS [Suspect]
  2. METHADONE [Suspect]
  3. DIPHENHYDRAMINE [Suspect]

REACTIONS (1)
  - Drug abuse [None]
